FAERS Safety Report 25394805 (Version 1)
Quarter: 2025Q2

REPORT INFORMATION
  Report Type: Spontaneous
  Country: US (occurrence: None)
  Receive Date: 20250603
  Receipt Date: 20250603
  Transmission Date: 20250716
  Serious: Yes (Life-Threatening, Hospitalization)
  Sender: FDA-CTU
  Company Number: None

PATIENT
  Age: 63 Year
  Sex: Female
  Weight: 45.81 kg

DRUGS (2)
  1. CAPIVASERTIB [Suspect]
     Active Substance: CAPIVASERTIB
     Indication: Breast cancer metastatic
     Dosage: FREQUENCY : TWICE A DAY;?
     Route: 048
     Dates: start: 20250501, end: 20250517
  2. CAPIVASERTIB [Concomitant]
     Active Substance: CAPIVASERTIB

REACTIONS (3)
  - Blood glucose increased [None]
  - Stress cardiomyopathy [None]
  - Ejection fraction decreased [None]
